FAERS Safety Report 7319649-1 (Version None)
Quarter: 2011Q1

REPORT INFORMATION
  Report Type: 
  Country: None (occurrence: None)
  Receive Date: 20110228
  Receipt Date: 20100619
  Transmission Date: 20110831
  Serious: No
  Sender: FDA-Public Use
  Company Number: A0867937A

PATIENT
  Age: 20 Year
  Sex: Female

DRUGS (2)
  1. CONCURRENT MEDICATIONS [Concomitant]
  2. LAMICTAL [Suspect]
     Route: 048

REACTIONS (2)
  - GASTRIC DISORDER [None]
  - DYSPEPSIA [None]
